FAERS Safety Report 7513523-3 (Version None)
Quarter: 2011Q2

REPORT INFORMATION
  Report Type: 
  Country: None (occurrence: None)
  Receive Date: 20110531
  Receipt Date: 20110518
  Transmission Date: 20111010
  Serious: Yes (Other)
  Sender: FDA-Public Use
  Company Number: US-BAYER-2011-042889

PATIENT
  Sex: Female

DRUGS (2)
  1. MIRENA [Suspect]
     Dosage: 20 ?G, UNK
     Route: 015
     Dates: start: 20110201, end: 20110510
  2. DOXYCYCLINE [Concomitant]

REACTIONS (3)
  - PAIN [None]
  - OVARIAN CYST [None]
  - VAGINAL HAEMORRHAGE [None]
